FAERS Safety Report 5819673-1 (Version None)
Quarter: 2008Q3

REPORT INFORMATION
  Report Type: 
  Country: None (occurrence: None)
  Receive Date: 20080723
  Receipt Date: 20080711
  Transmission Date: 20090109
  Serious: Yes (Other)
  Sender: FDA-Public Use
  Company Number: FR-PFIZER INC-2008039646

PATIENT
  Sex: Male
  Weight: 78 kg

DRUGS (2)
  1. CAVERJECT [Suspect]
     Indication: ERECTILE DYSFUNCTION
     Dosage: DAILY DOSE:5MCG
  2. BISOPROLOL FUMARATE [Concomitant]
     Route: 048

REACTIONS (3)
  - DRUG INEFFECTIVE [None]
  - ERECTION INCREASED [None]
  - PAIN [None]
